FAERS Safety Report 9764268 (Version 1)
Quarter: 2013Q4

REPORT INFORMATION
  Report Type: Report from Study
  Country: US (occurrence: US)
  Receive Date: 20131217
  Receipt Date: 20131217
  Transmission Date: 20140711
  Serious: Yes (Death)
  Sender: FDA-Public Use
  Company Number: US-ROCHE-1316210

PATIENT
  Sex: 0

DRUGS (8)
  1. MYCOPHENOLATE MOFETIL [Suspect]
     Indication: PROPHYLAXIS AGAINST GRAFT VERSUS HOST DISEASE
     Dosage: ON DAY -2 AND CONTINUING UNTIL DAY +60 POST TRANSPLANTATION
     Route: 048
  2. MYCOPHENOLATE MOFETIL [Suspect]
     Dosage: ON DAY -2 AND CONTINUING UNTIL DAY +60 POST TRANSPLANTATION
     Route: 042
  3. FLUDARABINE PHOSPHATE [Suspect]
     Indication: NEOPLASM MALIGNANT
     Dosage: CONDITIONING REGIMEN: OVER A PERIOD OF 30 MINUTES ON DAYS -5 THROUGH -2
     Route: 065
  4. FLUDARABINE PHOSPHATE [Suspect]
     Indication: MALIGNANT LYMPHOID NEOPLASM
  5. BUSULFAN [Suspect]
     Indication: NEOPLASM MALIGNANT
     Dosage: CONDITIONING REGIMEN: INFUSED OVER A PERIOD OF 3 HOURS ON DAYS -3 THROUGH -2
     Route: 065
  6. ALEMTUZUMAB [Suspect]
     Indication: NEOPLASM MALIGNANT
     Dosage: CONDITIONING REGIMEN: INFUSED OVER A PERIOD OF 3 HOURS ON DAYS -4 THROUGH -1
     Route: 065
  7. ALEMTUZUMAB [Suspect]
     Indication: MALIGNANT LYMPHOID NEOPLASM
  8. MELPHALAN [Suspect]
     Indication: NEOPLASM MALIGNANT
     Dosage: INFUSED OVER A PERIOD OF 15 MINUTES ON DAY -2
     Route: 065

REACTIONS (2)
  - Infection [Fatal]
  - Post transplant lymphoproliferative disorder [Fatal]
